FAERS Safety Report 18387632 (Version 2)
Quarter: 2020Q4

REPORT INFORMATION
  Report Type: Report from Study
  Country: CZ (occurrence: CZ)
  Receive Date: 20201015
  Receipt Date: 20201022
  Transmission Date: 20210114
  Serious: Yes (Life-Threatening, Hospitalization)
  Sender: FDA-Public Use
  Company Number: NVSC2020CZ266529

PATIENT
  Age: 55 Year
  Sex: Male
  Weight: 87 kg

DRUGS (16)
  1. ZOLPIDEM [Concomitant]
     Active Substance: ZOLPIDEM TARTRATE
     Indication: SLEEP DISORDER
     Dosage: 1.5, UNK
     Route: 065
     Dates: start: 20200929, end: 20200929
  2. BEVACIZUMAB. [Concomitant]
     Active Substance: BEVACIZUMAB
     Dosage: 5 MG, Q2W
     Route: 042
     Dates: start: 20201015
  3. 5-FLUOROURACIL [Concomitant]
     Active Substance: FLUOROURACIL
     Indication: COLORECTAL CANCER
     Dosage: 400 MG, Q2W
     Route: 042
     Dates: start: 20200916, end: 20200929
  4. ZOLPIDEM [Concomitant]
     Active Substance: ZOLPIDEM TARTRATE
     Indication: INSOMNIA
  5. IRINOTECAN [Concomitant]
     Active Substance: IRINOTECAN
     Indication: COLORECTAL CANCER
     Dosage: 180 MG, Q2W
     Route: 042
     Dates: start: 20200916, end: 20200929
  6. ATROPIN [Concomitant]
     Active Substance: ATROPINE
     Indication: PREMEDICATION
     Dosage: UNK
     Route: 065
     Dates: start: 20200916
  7. BEVACIZUMAB. [Concomitant]
     Active Substance: BEVACIZUMAB
     Indication: COLORECTAL CANCER
     Dosage: 5 MG, Q2W
     Route: 042
     Dates: start: 20200916, end: 20200929
  8. 5-FLUOROURACIL [Concomitant]
     Active Substance: FLUOROURACIL
     Dosage: 400 MG, Q2W
     Route: 042
     Dates: start: 20201015
  9. AGEN [Concomitant]
     Active Substance: AMLODIPINE BESYLATE
     Indication: HYPERTENSION
     Dosage: UNK
     Route: 065
     Dates: start: 20200910, end: 20200918
  10. CLEXANE [Concomitant]
     Active Substance: ENOXAPARIN SODIUM
     Indication: PROPHYLAXIS
     Dosage: UNK
     Route: 065
     Dates: start: 20201001, end: 20201005
  11. VEROSPIRON [Concomitant]
     Active Substance: SPIRONOLACTONE
     Indication: PROPHYLAXIS
     Dosage: UNK
     Route: 065
     Dates: start: 20201001, end: 20201001
  12. LEUCOVORIN. [Concomitant]
     Active Substance: LEUCOVORIN
     Indication: COLORECTAL CANCER
     Dosage: 400 MG, Q2W
     Route: 042
     Dates: start: 20200916, end: 20200929
  13. IRINOTECAN [Concomitant]
     Active Substance: IRINOTECAN
     Dosage: 180 MG, Q2W
     Route: 042
     Dates: start: 20201015
  14. IMODIUM [Concomitant]
     Active Substance: LOPERAMIDE HYDROCHLORIDE
     Indication: DIARRHOEA
     Dosage: UNK
     Route: 065
     Dates: start: 20200924, end: 20200924
  15. ONDANSETRON [Concomitant]
     Active Substance: ONDANSETRON
     Indication: PREMEDICATION
     Dosage: UNK
     Route: 065
     Dates: start: 20200916
  16. GEVOKIZUMAB [Suspect]
     Active Substance: GEVOKIZUMAB
     Indication: COLORECTAL CANCER
     Dosage: 60 MG, Q2W
     Route: 042
     Dates: start: 20200902, end: 20200929

REACTIONS (1)
  - Toxicity to various agents [Recovered/Resolved]

NARRATIVE: CASE EVENT DATE: 20201001
